FAERS Safety Report 4527678-6 (Version None)
Quarter: 2004Q4

REPORT INFORMATION
  Report Type: 
  Country: None (occurrence: None)
  Receive Date: 20041215
  Receipt Date: 20041207
  Transmission Date: 20050328
  Serious: Yes (Other)
  Sender: FDA-Public Use
  Company Number: JP-MERCK-0412USA01118

PATIENT
  Age: 75 Year
  Sex: Female

DRUGS (6)
  1. PEPCID RPD [Suspect]
     Route: 048
     Dates: start: 20020101, end: 20041001
  2. RILMAZAFONE HYDROCHLORIDE [Concomitant]
     Route: 065
  3. ASPIRIN [Concomitant]
     Route: 065
  4. SELBEX [Concomitant]
     Route: 065
  5. PRORENAL [Concomitant]
     Route: 065
  6. BIOFERMIN [Concomitant]
     Route: 065

REACTIONS (1)
  - DEPRESSED LEVEL OF CONSCIOUSNESS [None]
